FAERS Safety Report 16478775 (Version 1)
Quarter: 2019Q2

REPORT INFORMATION
  Report Type: Spontaneous
  Country: US (occurrence: US)
  Receive Date: 20190626
  Receipt Date: 20190626
  Transmission Date: 20190711
  Serious: No
  Sender: FDA-Public Use
  Company Number: US-PFIZER INC-2019273640

PATIENT
  Age: 38 Year
  Sex: Male

DRUGS (2)
  1. INAPSINE [Suspect]
     Active Substance: DROPERIDOL
     Dosage: UNK
  2. DEMEROL [Suspect]
     Active Substance: MEPERIDINE HYDROCHLORIDE
     Dosage: UNK

REACTIONS (2)
  - Dysphoria [Unknown]
  - Drug hypersensitivity [Unknown]
